FAERS Safety Report 23360623 (Version 2)
Quarter: 2024Q1

REPORT INFORMATION
  Report Type: Report from Study
  Country: US (occurrence: None)
  Receive Date: 20240103
  Receipt Date: 20240214
  Transmission Date: 20240409
  Serious: Yes (Other)
  Sender: FDA-Public Use
  Company Number: 2023A294453

PATIENT
  Sex: Female

DRUGS (1)
  1. FASENRA [Suspect]
     Active Substance: BENRALIZUMAB
     Indication: Asthma
     Dosage: 30 MG EVERY 4 WEEKS FOR MONTHS 2 AND 3, THEN EVERY 8 WEEKS THEREAFTER
     Route: 058

REACTIONS (2)
  - Cardiac failure congestive [Not Recovered/Not Resolved]
  - Oxygen saturation decreased [Recovering/Resolving]
